FAERS Safety Report 9788870 (Version 2)
Quarter: 2014Q2

REPORT INFORMATION
  Report Type: Report from Study
  Country: JP (occurrence: JP)
  Receive Date: 20131230
  Receipt Date: 20140516
  Transmission Date: 20141212
  Serious: Yes (Hospitalization)
  Sender: FDA-Public Use
  Company Number: JP-GLAXOSMITHKLINE-B0951490A

PATIENT
  Age: 61 Year
  Sex: Male
  Weight: 108 kg

DRUGS (11)
  1. VOTRIENT 200MG [Suspect]
     Indication: PLEOMORPHIC MALIGNANT FIBROUS HISTIOCYTOMA
     Dosage: 200MG PER DAY
     Route: 048
     Dates: start: 20121122, end: 20130216
  2. VOTRIENT 200MG [Suspect]
     Indication: PLEOMORPHIC MALIGNANT FIBROUS HISTIOCYTOMA
     Dosage: 400MG PER DAY
     Route: 048
     Dates: start: 20130217, end: 20130217
  3. VOTRIENT 200MG [Suspect]
     Indication: PLEOMORPHIC MALIGNANT FIBROUS HISTIOCYTOMA
     Dosage: 500MG PER DAY
     Route: 048
     Dates: start: 20130218, end: 20130326
  4. VOTRIENT 200MG [Suspect]
     Indication: PLEOMORPHIC MALIGNANT FIBROUS HISTIOCYTOMA
     Dosage: 500MG PER DAY
     Route: 048
     Dates: start: 20130328, end: 20130512
  5. VOTRIENT 200MG [Suspect]
     Indication: PLEOMORPHIC MALIGNANT FIBROUS HISTIOCYTOMA
     Dosage: 200MG PER DAY
     Route: 048
     Dates: start: 20130604, end: 20130618
  6. VOTRIENT 200MG [Suspect]
     Indication: PLEOMORPHIC MALIGNANT FIBROUS HISTIOCYTOMA
     Dosage: 400MG PER DAY
     Route: 048
     Dates: start: 20130619, end: 20130623
  7. VOTRIENT 200MG [Suspect]
     Indication: PLEOMORPHIC MALIGNANT FIBROUS HISTIOCYTOMA
     Dosage: 600MG PER DAY
     Route: 048
     Dates: start: 20130624, end: 20130730
  8. VOTRIENT 200MG [Suspect]
     Indication: PLEOMORPHIC MALIGNANT FIBROUS HISTIOCYTOMA
     Dosage: 800MG PER DAY
     Route: 048
     Dates: start: 20130731
  9. OMNIPAQUE [Suspect]
     Dosage: 150ML PER DAY
     Dates: start: 20130327, end: 20130327
  10. OMEPRAL [Concomitant]
     Indication: DUODENAL ULCER
     Route: 065
  11. TAKEPRON [Concomitant]
     Indication: DUODENAL ULCER
     Route: 065

REACTIONS (3)
  - Contrast media allergy [Recovered/Resolved]
  - Hepatic function abnormal [Recovered/Resolved]
  - Hypertension [Recovered/Resolved]
